FAERS Safety Report 5896057-1 (Version None)
Quarter: 2008Q3

REPORT INFORMATION
  Report Type: 
  Country: None (occurrence: None)
  Receive Date: 20080924
  Receipt Date: 20080911
  Transmission Date: 20090109
  Serious: Yes (Hospitalization, Other)
  Sender: FDA-Public Use
  Company Number: US-ELI_LILLY_AND_COMPANY-US200809002685

PATIENT
  Sex: Female

DRUGS (3)
  1. FORTEO [Suspect]
     Indication: OSTEOPOROSIS
     Dates: start: 20030101, end: 20050101
  2. FORTEO [Suspect]
     Dates: start: 20080101
  3. EVISTA [Concomitant]
     Dates: start: 20080101

REACTIONS (6)
  - ARTERIAL OCCLUSIVE DISEASE [None]
  - FACTOR V LEIDEN MUTATION [None]
  - INJECTION SITE HAEMATOMA [None]
  - MYOCARDIAL INFARCTION [None]
  - POLYP [None]
  - SPINAL FRACTURE [None]
